FAERS Safety Report 6348727-9 (Version None)
Quarter: 2009Q3

REPORT INFORMATION
  Report Type: 
  Country: None (occurrence: None)
  Receive Date: 20090911
  Receipt Date: 20090908
  Transmission Date: 20100115
  Serious: Yes (Death, Hospitalization)
  Sender: FDA-Public Use
  Company Number: PHHY2009BR38365

PATIENT
  Sex: Male

DRUGS (4)
  1. FORASEQ [Suspect]
     Indication: EMPHYSEMA
  2. FORASEQ [Suspect]
     Indication: ALLERGIC BRONCHITIS
  3. BEROTEC [Concomitant]
  4. ATROVENT [Concomitant]

REACTIONS (1)
  - EMPHYSEMA [None]
